FAERS Safety Report 25720686 (Version 1)
Quarter: 2025Q3

REPORT INFORMATION
  Report Type: Report from Study
  Country: US (occurrence: US)
  Receive Date: 20250825
  Receipt Date: 20250825
  Transmission Date: 20251020
  Serious: Yes (Other)
  Sender: TAKEDA
  Company Number: US-TAKEDA-2025TUS073547

PATIENT
  Age: 69 Year
  Sex: Female

DRUGS (1)
  1. HUMAN IMMUNOGLOBULIN G [Suspect]
     Active Substance: HUMAN IMMUNOGLOBULIN G
     Indication: Primary immunodeficiency syndrome

REACTIONS (5)
  - Jaw fracture [Unknown]
  - Fall [Unknown]
  - Concussion [Unknown]
  - Sinus barotrauma [Unknown]
  - Cough [Unknown]

NARRATIVE: CASE EVENT DATE: 20250818
